FAERS Safety Report 9737038 (Version 3)
Quarter: 2015Q3

REPORT INFORMATION
  Report Type: Spontaneous
  Country: US (occurrence: US)
  Receive Date: 20131206
  Receipt Date: 20150804
  Transmission Date: 20151125
  Serious: No
  Sender: FDA-Public Use
  Company Number: US-GILEAD-2009-0023850

PATIENT
  Age: 70 Year
  Sex: Female
  Weight: 111.58 kg

DRUGS (17)
  1. EXCEDRIN [Concomitant]
     Active Substance: ACETAMINOPHEN\ASPIRIN\CAFFEINE
  2. ZOCOR [Concomitant]
     Active Substance: SIMVASTATIN
  3. OS-CAL 500MG +D [Concomitant]
  4. VITAMIN C [Concomitant]
     Active Substance: ASCORBIC ACID
  5. POTASSIUM CHLORIDE. [Concomitant]
     Active Substance: POTASSIUM CHLORIDE
  6. IRON [Concomitant]
     Active Substance: IRON
  7. HYDROCHLOROTHIAZIDE/TRIAMTERENE [Concomitant]
  8. DAILY MULTIVITAMIN [Concomitant]
     Active Substance: VITAMINS
  9. MULTIPLE MINERALS [Concomitant]
  10. PROBIOTIC COMPLEX [Concomitant]
  11. CARDI-OMEGA 3 [Concomitant]
  12. LORTAB [Concomitant]
     Active Substance: ACETAMINOPHEN\HYDROCODONE BITARTRATE
  13. NORVASC [Concomitant]
     Active Substance: AMLODIPINE BESYLATE
  14. PRILOSEC [Concomitant]
     Active Substance: OMEPRAZOLE MAGNESIUM
  15. LETAIRIS [Suspect]
     Active Substance: AMBRISENTAN
     Indication: PULMONARY ARTERIAL HYPERTENSION
     Route: 048
  16. LASIX [Concomitant]
     Active Substance: FUROSEMIDE
  17. FLUOXETINE [Concomitant]
     Active Substance: FLUOXETINE\FLUOXETINE HYDROCHLORIDE

REACTIONS (2)
  - Palpitations [Unknown]
  - Renal failure [Unknown]
